FAERS Safety Report 23813108 (Version 1)
Quarter: 2024Q2

REPORT INFORMATION
  Report Type: Spontaneous
  Country: US (occurrence: US)
  Receive Date: 20240503
  Receipt Date: 20240503
  Transmission Date: 20240715
  Serious: No
  Sender: FDA-Public Use
  Company Number: US-AMNEAL PHARMACEUTICALS-2023-AMRX-04385

PATIENT
  Sex: Female
  Weight: 8.118 kg

DRUGS (3)
  1. VIGABATRIN [Suspect]
     Active Substance: VIGABATRIN
     Indication: Infantile spasms
     Dosage: UNK
     Route: 048
     Dates: start: 20231003
  2. VIGABATRIN [Suspect]
     Active Substance: VIGABATRIN
     Dosage: 10 MILLILITER, 2 /DAY
     Route: 048
  3. VIGABATRIN [Suspect]
     Active Substance: VIGABATRIN
     Dosage: MIX 1 PACKET IN 10 ML OF WATER AND GIVE/TAKE 10 ML (500 MG) TWICE A DAY.
     Route: 048

REACTIONS (3)
  - Muscle spasms [Unknown]
  - Illness [Unknown]
  - Weight increased [Unknown]
